FAERS Safety Report 10426185 (Version 1)
Quarter: 2014Q3

REPORT INFORMATION
  Report Type: Spontaneous
  Country: US (occurrence: US)
  Receive Date: 20140903
  Receipt Date: 20140903
  Transmission Date: 20150326
  Serious: Yes (Death, Other)
  Sender: FDA-Public Use
  Company Number: US-GLENMARK PHARMACEUTICALS EUROPE LIMITED-2014GMK011047

PATIENT
  Age: 35 Year
  Sex: Female

DRUGS (1)
  1. CITALOPRAM HYDROBROMIDE. [Suspect]
     Active Substance: CITALOPRAM HYDROBROMIDE
     Indication: PRODUCT USED FOR UNKNOWN INDICATION
     Dosage: UNK

REACTIONS (10)
  - Haemodynamic instability [Fatal]
  - Convulsion [Fatal]
  - Cardiac arrest [Fatal]
  - Tachycardia [Fatal]
  - Serotonin syndrome [Fatal]
  - Pyrexia [Fatal]
  - Pulseless electrical activity [Fatal]
  - Intentional overdose [Fatal]
  - Torsade de pointes [Fatal]
  - Hypertonia [Fatal]
